FAERS Safety Report 9012876 (Version 1)
Quarter: 2013Q1

REPORT INFORMATION
  Report Type: Spontaneous
  Country: IT (occurrence: IT)
  Receive Date: 20130114
  Receipt Date: 20130114
  Transmission Date: 20140127
  Serious: Yes (Other)
  Sender: FDA-Public Use
  Company Number: IT-AMGEN-ITASP2013001774

PATIENT
  Age: 54 Year
  Sex: Female

DRUGS (1)
  1. PANITUMUMAB [Suspect]
     Indication: METASTATIC GASTRIC CANCER
     Dosage: UNK

REACTIONS (4)
  - Trichomegaly [Unknown]
  - Rash pustular [Recovered/Resolved]
  - Paronychia [Unknown]
  - Dry skin [Unknown]
